FAERS Safety Report 9691617 (Version 1)
Quarter: 2013Q4

REPORT INFORMATION
  Report Type: Report from Study
  Country: US (occurrence: US)
  Receive Date: 20131115
  Receipt Date: 20131115
  Transmission Date: 20140711
  Serious: Yes (Hospitalization, Other)
  Sender: FDA-Public Use
  Company Number: US-ABBVIE-13P-163-1167651-00

PATIENT
  Age: 92 Year
  Sex: Female
  Weight: 71.73 kg

DRUGS (3)
  1. HUMIRA [Suspect]
     Indication: RHEUMATOID ARTHRITIS
     Route: 058
  2. UNKNOWN BLOOD PRESSURE MEDICATION [Suspect]
     Indication: HYPERTENSION
     Dates: end: 201310
  3. UNKNOWN BLOOD PRESSURE MEDICATION [Suspect]
     Dates: start: 2013

REACTIONS (4)
  - Hypotension [Unknown]
  - Drug level above therapeutic [Not Recovered/Not Resolved]
  - Diplopia [Recovered/Resolved]
  - Headache [Recovered/Resolved]
